FAERS Safety Report 8218846-0 (Version None)
Quarter: 2012Q1

REPORT INFORMATION
  Report Type: 
  Country: None (occurrence: None)
  Receive Date: 20120319
  Receipt Date: 20120314
  Transmission Date: 20120608
  Serious: Yes (Hospitalization)
  Sender: FDA-Public Use
  Company Number: US-GILEAD-2012-0050900

PATIENT
  Sex: Female

DRUGS (1)
  1. LETAIRIS [Suspect]
     Indication: PULMONARY ARTERIAL HYPERTENSION
     Dosage: 5 MG, UNK
     Route: 048
     Dates: start: 20110802, end: 20120216

REACTIONS (6)
  - ABDOMINAL DISTENSION [None]
  - PERICARDIAL EFFUSION [None]
  - VOMITING [None]
  - OEDEMA [None]
  - CHEST PAIN [None]
  - PNEUMONIA [None]
